FAERS Safety Report 10805142 (Version 1)
Quarter: 2015Q1

REPORT INFORMATION
  Report Type: Report from Study
  Country: US (occurrence: US)
  Receive Date: 20150217
  Receipt Date: 20150217
  Transmission Date: 20150721
  Serious: No
  Sender: FDA-Public Use
  Company Number: US-ABBVIE-14K-163-1262326-00

PATIENT
  Age: 51 Year
  Sex: Female

DRUGS (5)
  1. SOMA [Concomitant]
     Active Substance: CARISOPRODOL
     Indication: PAIN IN EXTREMITY
     Dosage: AT BEDTIME
  2. HUMIRA [Suspect]
     Active Substance: ADALIMUMAB
     Indication: PSORIATIC ARTHROPATHY
     Dates: start: 201406
  3. METHOTREXATE [Concomitant]
     Active Substance: METHOTREXATE
     Indication: PSORIASIS
  4. PLAQUENIL [Concomitant]
     Active Substance: HYDROXYCHLOROQUINE SULFATE
     Indication: PSORIASIS
  5. FOLIC ACID. [Concomitant]
     Active Substance: FOLIC ACID
     Indication: VITAMIN SUPPLEMENTATION
     Dosage: EXCEPT ON METHOTREXATE DAY DUE TO METHOTREXATE USE

REACTIONS (7)
  - Fatigue [Unknown]
  - Ear congestion [Not Recovered/Not Resolved]
  - Joint swelling [Unknown]
  - Dysphagia [Not Recovered/Not Resolved]
  - Pericardial effusion [Unknown]
  - Pharyngitis [Unknown]
  - Dysphonia [Unknown]

NARRATIVE: CASE EVENT DATE: 2014
